FAERS Safety Report 8152869 (Version 4)
Quarter: 2012Q4

REPORT INFORMATION
  Report Type: 
  Country: US (occurrence: US)
  Receive Date: 20110922
  Receipt Date: 20121003
  Transmission Date: 20130627
  Serious: Yes (Hospitalization, Other)
  Sender: FDA-Public Use
  Company Number: US-US-EMD SERONO, INC.-7083011

PATIENT
  Age: 66 None
  Sex: Female
  Weight: 75 kg

DRUGS (4)
  1. REBIF [Suspect]
     Indication: MULTIPLE SCLEROSIS
     Route: 058
     Dates: start: 20090309
  2. LISINOPRIL [Concomitant]
     Indication: HYPERTENSION
  3. HYDROCHLOROTHIAZIDE [Concomitant]
     Indication: HYPERTENSION
  4. METFORMIN [Concomitant]
     Indication: TYPE 2 DIABETES MELLITUS

REACTIONS (12)
  - Cerebrovascular accident [Recovered/Resolved]
  - Heart disease congenital [Unknown]
  - Basal cell carcinoma [Recovered/Resolved]
  - Parathyroid tumour benign [Unknown]
  - Thyroid disorder [Unknown]
  - Central nervous system lesion [Not Recovered/Not Resolved]
  - Balance disorder [Not Recovered/Not Resolved]
  - Asthenia [Not Recovered/Not Resolved]
  - Gait disturbance [Not Recovered/Not Resolved]
  - Erythema [Recovering/Resolving]
  - Hypoaesthesia [Not Recovered/Not Resolved]
  - Influenza like illness [Recovering/Resolving]
